FAERS Safety Report 7956188-9 (Version None)
Quarter: 2011Q4

REPORT INFORMATION
  Report Type: 
  Country: None (occurrence: None)
  Receive Date: 20111205
  Receipt Date: 20111124
  Transmission Date: 20120403
  Serious: Yes (Hospitalization)
  Sender: FDA-Public Use
  Company Number: BR-US-EMD SERONO, INC.-7098349

PATIENT
  Sex: Female

DRUGS (3)
  1. REBIF [Suspect]
     Indication: RELAPSING-REMITTING MULTIPLE SCLEROSIS
     Dates: start: 20100816, end: 20111104
  2. VENLAFAXINE [Concomitant]
  3. IBUPROFEN [Concomitant]

REACTIONS (4)
  - HYPERTENSION [None]
  - VOMITING [None]
  - HEPATIC ENZYME ABNORMAL [None]
  - BLOOD GLUCOSE INCREASED [None]
